FAERS Safety Report 9333500 (Version 2)
Quarter: 2014Q4

REPORT INFORMATION
  Report Type: Spontaneous
  Country: US (occurrence: US)
  Receive Date: 20130606
  Receipt Date: 20141006
  Transmission Date: 20150529
  Serious: No
  Sender: FDA-Public Use
  Company Number: US-AMGEN-USASP2012079177

PATIENT
  Age: 70 Year
  Sex: Male

DRUGS (5)
  1. CHLORELLA VULGARIS [Concomitant]
     Active Substance: CHLORELLA VULGARIS
     Dosage: UNK
  2. PROVENGE [Concomitant]
     Active Substance: SIPULEUCEL-T
     Dosage: UNK
  3. FISH OIL [Concomitant]
     Active Substance: FISH OIL
     Dosage: UNK
  4. XGEVA [Suspect]
     Active Substance: DENOSUMAB
     Indication: METASTASES TO BONE
     Dosage: 120 MG, Q4WK
     Route: 058
     Dates: start: 201201
  5. TAXOTERE [Concomitant]
     Active Substance: DOCETAXEL
     Dosage: 30 MG, UNK
     Route: 058
     Dates: start: 20131224

REACTIONS (3)
  - Blood test abnormal [Unknown]
  - Dental caries [Unknown]
  - Haemoglobin decreased [Unknown]

NARRATIVE: CASE EVENT DATE: 201208
